FAERS Safety Report 8093459-2 (Version None)
Quarter: 2012Q1

REPORT INFORMATION
  Report Type: 
  Country: None (occurrence: None)
  Receive Date: 20120129
  Receipt Date: 20110901
  Transmission Date: 20120608
  Serious: No
  Sender: FDA-Public Use
  Company Number: US-ABBOTT-11P-163-0851309-00

PATIENT
  Sex: Female
  Weight: 86.26 kg

DRUGS (5)
  1. PRAVASTATIN SODIUM [Concomitant]
     Indication: BLOOD CHOLESTEROL INCREASED
  2. HUMIRA [Suspect]
     Indication: PUSTULAR PSORIASIS
     Route: 058
     Dates: start: 20090101
  3. ZOLPIDEM [Concomitant]
     Indication: ANXIETY
     Dosage: AS NEEDED AT BEDTIME
  4. CLONAZEPAM [Concomitant]
     Indication: ANXIETY
  5. ATENOLOL [Concomitant]
     Indication: HYPERTENSION

REACTIONS (5)
  - PSORIASIS [None]
  - SECRETION DISCHARGE [None]
  - PAIN IN EXTREMITY [None]
  - STRESS [None]
  - BLISTER [None]
